FAERS Safety Report 23405150 (Version 1)
Quarter: 2024Q1

REPORT INFORMATION
  Report Type: Spontaneous
  Country: US (occurrence: US)
  Receive Date: 20240116
  Receipt Date: 20240116
  Transmission Date: 20240409
  Serious: Yes (Hospitalization)
  Sender: FDA-Public Use
  Company Number: US-OTSUKA-2024_000809

PATIENT
  Sex: Female

DRUGS (1)
  1. REXULTI [Suspect]
     Active Substance: BREXPIPRAZOLE
     Indication: Dementia Alzheimer^s type
     Dosage: UNK
     Route: 065
     Dates: start: 20231127, end: 20231215

REACTIONS (3)
  - Schizophreniform disorder [Unknown]
  - Product use issue [Unknown]
  - Inability to afford medication [Unknown]
